FAERS Safety Report 26148992 (Version 1)
Quarter: 2025Q4

REPORT INFORMATION
  Report Type: Spontaneous
  Country: CA (occurrence: CA)
  Receive Date: 20251212
  Receipt Date: 20251212
  Transmission Date: 20260117
  Serious: Yes (Other)
  Sender: TEVA
  Company Number: CA-TEVA-VS-3401070

PATIENT
  Age: 46 Year
  Sex: Male

DRUGS (1)
  1. OXALIPLATIN [Suspect]
     Active Substance: OXALIPLATIN
     Indication: Colorectal cancer metastatic
     Dosage: DOSE FORM: SOLUTION INTRAVENOUS, OXALIPLATIN INJECTION, USP SINGLE USE VIALS
     Route: 042

REACTIONS (5)
  - Flushing [Recovered/Resolved]
  - Urticaria [Recovered/Resolved]
  - Cough [Recovered/Resolved]
  - Nasal congestion [Recovered/Resolved]
  - Pharyngeal paraesthesia [Recovered/Resolved]
